FAERS Safety Report 7107804-5 (Version None)
Quarter: 2010Q4

REPORT INFORMATION
  Report Type: 
  Country: None (occurrence: None)
  Receive Date: 20101117
  Receipt Date: 20101108
  Transmission Date: 20110411
  Serious: Yes (Hospitalization)
  Sender: FDA-Public Use
  Company Number: PHHO2010GT14976

PATIENT
  Sex: Male
  Weight: 75.45 kg

DRUGS (3)
  1. ENALAPRIL MALEATE [Suspect]
     Indication: CARDIAC FAILURE CHRONIC
     Dosage: CODE NOT BROKEN
     Route: 048
     Dates: start: 20100925
  2. BLINDED LCZ696 LCZ+TAB+CF [Suspect]
     Indication: CARDIAC FAILURE CHRONIC
     Dosage: CODE NOT BROKEN
     Route: 048
     Dates: start: 20100925
  3. BLINDED NO TREATMENT RECEIVED NOMED [Suspect]
     Indication: CARDIAC FAILURE CHRONIC
     Dosage: CODE NOT BROKEN
     Route: 048
     Dates: start: 20100925

REACTIONS (10)
  - BRONCHITIS [None]
  - CARDIAC FAILURE CHRONIC [None]
  - CHILLS [None]
  - COUGH [None]
  - DISEASE PROGRESSION [None]
  - DRUG INEFFECTIVE [None]
  - PRODUCTIVE COUGH [None]
  - PYREXIA [None]
  - RALES [None]
  - RESPIRATORY TRACT INFECTION [None]
